FAERS Safety Report 17581921 (Version 1)
Quarter: 2020Q1

REPORT INFORMATION
  Report Type: Spontaneous
  Country: US (occurrence: US)
  Receive Date: 20200325
  Receipt Date: 20200325
  Transmission Date: 20200409
  Serious: No
  Sender: FDA-Public Use
  Company Number: None

PATIENT
  Age: 58 Year
  Sex: Female
  Weight: 61.65 kg

DRUGS (18)
  1. AMPHETAMINE -DEXTROAMPHETAMINE ER  30 MG DAILY [Concomitant]
  2. LORAZEPAM 1 MG ORALLY EVERY 6 HOURS AS NEEDED [Concomitant]
  3. TRAMADOL 50 MG ORALLY EVERY 4 TO 6 HOURS [Concomitant]
  4. RISA - BID PROBIOTIC ORALLY EVERYDAY [Concomitant]
  5. EXEMESTANE 25MG ORALLY DAILY [Concomitant]
     Dates: start: 20200324
  6. IBRANCE [Suspect]
     Active Substance: PALBOCICLIB
     Indication: BREAST CANCER
     Route: 048
     Dates: start: 20190412, end: 20200325
  7. FLUTICASONE PROPIONATE 50 MCG/ACTUATION INTRANASALLY [Concomitant]
  8. LETROZOLE 2.5 MG TABLET [Concomitant]
     Active Substance: LETROZOLE
     Dates: start: 20190412, end: 20190718
  9. OMEPRAZOLE 40 MG ORALLY [Concomitant]
  10. VENLAFAXINE ER 37.5 MG ORALLY EVERYDAY [Concomitant]
  11. CYANOCOBALAMIN 2000 MCG SUBLINGUALLY [Concomitant]
  12. MONTELUKAST 10 MG ORALLY [Concomitant]
  13. MULTIVITAMIN ADULTS [Concomitant]
  14. PROMETHAZINE 25 MG EVERY 6 HOURS AS NEEDED [Concomitant]
  15. SUMATRIPTAN SUCCINATE 100 MG ORALLY [Concomitant]
  16. AFINITOR 10MG TABLET ORALLY DAILY [Concomitant]
     Dates: start: 20200324
  17. CALCIUM CARBONATE - VITAMIN D 500-400 MG ORALLY [Concomitant]
  18. XGEVA 120 MG/1.7 ML SUBQ ONCE MONTHLY [Concomitant]

REACTIONS (1)
  - Disease progression [None]

NARRATIVE: CASE EVENT DATE: 20200325
